FAERS Safety Report 21243390 (Version 1)
Quarter: 2022Q3

REPORT INFORMATION
  Report Type: Spontaneous
  Country: US (occurrence: US)
  Receive Date: 20220823
  Receipt Date: 20220823
  Transmission Date: 20221027
  Serious: Yes (Other)
  Sender: FDA-Public Use
  Company Number: US-BAYER-2022A116946

PATIENT
  Age: 66 Year
  Sex: Male

DRUGS (1)
  1. VITRAKVI [Suspect]
     Active Substance: LAROTRECTINIB
     Indication: Thyroid cancer
     Dosage: UNK
     Dates: start: 20220124

REACTIONS (3)
  - Neuropathy peripheral [None]
  - Petechiae [None]
  - Muscle spasms [None]

NARRATIVE: CASE EVENT DATE: 20220819
